FAERS Safety Report 26103667 (Version 3)
Quarter: 2025Q4

REPORT INFORMATION
  Report Type: Spontaneous
  Country: US (occurrence: US)
  Receive Date: 20251129
  Receipt Date: 20251204
  Transmission Date: 20260117
  Serious: No
  Sender: SANOFI AVENTIS
  Company Number: US-SA-2025SA355030

PATIENT
  Age: 45 Year
  Sex: Female

DRUGS (1)
  1. DUPIXENT [Suspect]
     Active Substance: DUPILUMAB
     Route: 065

REACTIONS (3)
  - Injury associated with device [Unknown]
  - Needle issue [Unknown]
  - Urticaria [Unknown]
